FAERS Safety Report 8136040-9 (Version None)
Quarter: 2012Q1

REPORT INFORMATION
  Report Type: 
  Country: None (occurrence: None)
  Receive Date: 20120214
  Receipt Date: 20120210
  Transmission Date: 20120608
  Serious: No
  Sender: FDA-Public Use
  Company Number: US-PFIZER INC-2012037286

PATIENT
  Sex: Female

DRUGS (1)
  1. LEVOXYL [Suspect]
     Indication: HYPOTHYROIDISM
     Dosage: 50 MG, DAILY
     Dates: start: 20120124, end: 20120101

REACTIONS (5)
  - THIRST [None]
  - DYSPNOEA [None]
  - COUGH [None]
  - SOMNOLENCE [None]
  - FATIGUE [None]
